FAERS Safety Report 6322057-3 (Version None)
Quarter: 2009Q3

REPORT INFORMATION
  Report Type: 
  Country: None (occurrence: None)
  Receive Date: 20090821
  Receipt Date: 20090821
  Transmission Date: 20100115
  Serious: Yes (Other)
  Sender: FDA-Public Use
  Company Number: None

PATIENT
  Age: 59 Year
  Sex: Female
  Weight: 81.6475 kg

DRUGS (3)
  1. LEVAQUIN [Suspect]
     Indication: BRONCHITIS
     Dosage: ONE PILL DAILY
     Dates: start: 20071015, end: 20080115
  2. LEVAQUIN [Suspect]
     Indication: SINUSITIS
     Dosage: ONE PILL DAILY
     Dates: start: 20071015, end: 20080115
  3. LEVAQUIN [Suspect]
     Dosage: ONE PILL DAILY

REACTIONS (5)
  - ARTHRITIS [None]
  - GAIT DISTURBANCE [None]
  - JOINT SPRAIN [None]
  - LIMB INJURY [None]
  - ROTATOR CUFF SYNDROME [None]
